FAERS Safety Report 18320906 (Version 1)
Quarter: 2020Q3

REPORT INFORMATION
  Report Type: Report from Study
  Country: US (occurrence: US)
  Receive Date: 20200928
  Receipt Date: 20200928
  Transmission Date: 20201103
  Serious: Yes (Other)
  Sender: FDA-Public Use
  Company Number: US-TAKEDA-2020TUS026454

PATIENT
  Age: 21 Year
  Sex: Female

DRUGS (2)
  1. BORTEZOMIB. [Suspect]
     Active Substance: BORTEZOMIB
     Indication: BONE CANCER
     Dosage: UNK
     Route: 058
     Dates: start: 20200612
  2. BORTEZOMIB. [Suspect]
     Active Substance: BORTEZOMIB
     Indication: CHONDROPATHY

REACTIONS (6)
  - Product dose omission issue [Unknown]
  - Bone cancer [Unknown]
  - Full blood count decreased [Not Recovered/Not Resolved]
  - Cartilage neoplasm [Unknown]
  - Illness [Unknown]
  - Off label use [Unknown]

NARRATIVE: CASE EVENT DATE: 20200625
